FAERS Safety Report 5165178-3 (Version None)
Quarter: 2006Q4

REPORT INFORMATION
  Report Type: 
  Country: None (occurrence: None)
  Receive Date: 20061127
  Receipt Date: 20061107
  Transmission Date: 20070319
  Serious: Yes (Life-Threatening, Hospitalization)
  Sender: FDA-Public Use
  Company Number: GXKR2006ES07106

PATIENT
  Age: 15 Year
  Sex: Female

DRUGS (3)
  1. ISONIAZID [Suspect]
     Indication: TUBERCULOSIS
     Dosage: 15 MG/KG,
  2. RIFAMPICIN [Suspect]
     Indication: TUBERCULOSIS
     Dosage: 10 MG/KG,
  3. PYRAZINAMIDE [Suspect]
     Indication: TUBERCULOSIS
     Dosage: 30 MG/KG,

REACTIONS (5)
  - ACUTE HEPATIC FAILURE [None]
  - DRUG TOXICITY [None]
  - HEPATIC NECROSIS [None]
  - HEPATOTOXICITY [None]
  - VOMITING [None]
